FAERS Safety Report 13765003 (Version 1)
Quarter: 2017Q3

REPORT INFORMATION
  Report Type: Spontaneous
  Country: US (occurrence: US)
  Receive Date: 20170718
  Receipt Date: 20170718
  Transmission Date: 20171127
  Serious: Yes (Other)
  Sender: FDA-Public Use
  Company Number: US-MYLANLABS-2017M1041492

PATIENT

DRUGS (1)
  1. ACITRETIN CAPSULES USP [Suspect]
     Active Substance: ACITRETIN
     Indication: ECZEMA
     Dosage: 1 DF, QD
     Route: 048
     Dates: start: 20170616, end: 201706

REACTIONS (3)
  - Staphylococcal infection [Recovered/Resolved]
  - Peripheral swelling [Recovered/Resolved]
  - Condition aggravated [Recovered/Resolved]

NARRATIVE: CASE EVENT DATE: 201706
